FAERS Safety Report 7406140-7 (Version None)
Quarter: 2011Q2

REPORT INFORMATION
  Report Type: 
  Country: None (occurrence: None)
  Receive Date: 20110405
  Receipt Date: 20110405
  Transmission Date: 20111010
  Serious: No
  Sender: FDA-Public Use
  Company Number: None

PATIENT

DRUGS (1)
  1. BENZALKONIUM CHLORIDE [Suspect]

REACTIONS (4)
  - SKIN DISORDER [None]
  - PRODUCT QUALITY ISSUE [None]
  - PURULENCE [None]
  - HYPERSENSITIVITY [None]
